FAERS Safety Report 24179547 (Version 1)
Quarter: 2024Q3

REPORT INFORMATION
  Report Type: Report from Study
  Country: CO (occurrence: CO)
  Receive Date: 20240806
  Receipt Date: 20240806
  Transmission Date: 20241017
  Serious: Yes (Hospitalization)
  Sender: JOHNSON AND JOHNSON
  Company Number: CO-JNJFOC-20240619567

PATIENT
  Age: 25 Year
  Sex: Male
  Weight: 65 kg

DRUGS (3)
  1. INVEGA SUSTENNA [Suspect]
     Active Substance: PALIPERIDONE PALMITATE
     Indication: Schizophrenia
     Dosage: LAST DRUG APPLICATION:06-JUL-2024.
     Route: 030
     Dates: start: 20220303
  2. INVEGA SUSTENNA [Suspect]
     Active Substance: PALIPERIDONE PALMITATE
  3. INVEGA SUSTENNA [Suspect]
     Active Substance: PALIPERIDONE PALMITATE

REACTIONS (5)
  - Hallucination [Recovering/Resolving]
  - Abnormal behaviour [Recovering/Resolving]
  - Persecutory delusion [Recovering/Resolving]
  - Incoherent [Unknown]
  - Feeling abnormal [Unknown]

NARRATIVE: CASE EVENT DATE: 20240727
